FAERS Safety Report 5833087-X (Version None)
Quarter: 2008Q3

REPORT INFORMATION
  Report Type: 
  Country: None (occurrence: None)
  Receive Date: 20080805
  Receipt Date: 20080729
  Transmission Date: 20090109
  Serious: Yes (Hospitalization, Other)
  Sender: FDA-Public Use
  Company Number: JP-ASTRAZENECA-2008AP05795

PATIENT
  Age: 75 Year
  Sex: Female

DRUGS (2)
  1. IRESSA [Suspect]
     Indication: LUNG ADENOCARCINOMA
     Route: 048
     Dates: start: 20080408, end: 20080514
  2. IRESSA [Suspect]
     Route: 048
     Dates: start: 20080620, end: 20080728

REACTIONS (3)
  - ALOPECIA [None]
  - ANAEMIA [None]
  - WHITE BLOOD CELL COUNT DECREASED [None]
